FAERS Safety Report 11274032 (Version 2)
Quarter: 2018Q2

REPORT INFORMATION
  Report Type: Spontaneous
  Country: AU (occurrence: AU)
  Receive Date: 20150715
  Receipt Date: 20180420
  Transmission Date: 20180711
  Serious: Yes (Other)
  Sender: FDA-Public Use
  Company Number: AU-ASTRAZENECA-2015SE67621

PATIENT
  Age: 65 Year
  Sex: Male

DRUGS (2)
  1. SODIUM CHLORIDE. [Suspect]
     Active Substance: SODIUM CHLORIDE
     Route: 065
  2. FORXIGA [Suspect]
     Active Substance: DAPAGLIFLOZIN
     Route: 048

REACTIONS (2)
  - Acidosis hyperchloraemic [Unknown]
  - Diabetic ketoacidosis [Unknown]
